FAERS Safety Report 10006980 (Version 3)
Quarter: 2014Q2

REPORT INFORMATION
  Report Type: Spontaneous
  Country: FR (occurrence: FR)
  Receive Date: 20140313
  Receipt Date: 20140428
  Transmission Date: 20141212
  Serious: Yes (Death, Life-Threatening, Hospitalization)
  Sender: FDA-Public Use
  Company Number: FR-JNJFOC-20140218226

PATIENT
  Age: 68 Year
  Sex: Male

DRUGS (10)
  1. ZYTIGA [Suspect]
     Indication: PROSTATE CANCER
     Dosage: 4 DOSES OF 250 MG
     Route: 048
     Dates: start: 20130905, end: 20140218
  2. PREDNISONE [Suspect]
     Indication: PRODUCT USED FOR UNKNOWN INDICATION
     Dosage: 4 DOSES OF 250 MG
     Route: 048
     Dates: start: 20130905, end: 20140220
  3. XGEVA [Suspect]
     Indication: METASTASES TO BONE
     Route: 058
     Dates: start: 20130905
  4. PROPRANOLOL HCL [Concomitant]
     Route: 048
     Dates: end: 20140220
  5. CALCIUM CARBONATE [Concomitant]
     Route: 048
     Dates: end: 20140220
  6. VITAMIN D3 [Concomitant]
     Route: 048
     Dates: end: 20140220
  7. ZOLADEX [Concomitant]
     Route: 058
     Dates: start: 201104, end: 201312
  8. PARACETAMOL [Concomitant]
     Route: 065
  9. COLECALCIFEROL [Concomitant]
     Route: 065
     Dates: start: 20140220
  10. CALCIUM CARBONATE [Concomitant]
     Route: 065
     Dates: start: 20140220

REACTIONS (3)
  - Shock [Fatal]
  - Hepatitis fulminant [Fatal]
  - Incorrect dose administered [Unknown]
